FAERS Safety Report 6384248-5 (Version None)
Quarter: 2009Q4

REPORT INFORMATION
  Report Type: 
  Country: None (occurrence: None)
  Receive Date: 20091001
  Receipt Date: 20090921
  Transmission Date: 20100525
  Serious: Yes (Hospitalization)
  Sender: FDA-Public Use
  Company Number: IT-PFIZER INC-2009272081

PATIENT
  Age: 57 Year

DRUGS (1)
  1. SUTENT [Suspect]
     Indication: RENAL CANCER
     Dosage: 50 MG/KG DAILY
     Route: 048
     Dates: start: 20081212, end: 20090820

REACTIONS (2)
  - ERYTHEMA MULTIFORME [None]
  - PLATELET COUNT DECREASED [None]
